FAERS Safety Report 6526415-3 (Version None)
Quarter: 2010Q1

REPORT INFORMATION
  Report Type: 
  Country: None (occurrence: None)
  Receive Date: 20100105
  Receipt Date: 20091229
  Transmission Date: 20100710
  Serious: Yes (Death, Life-Threatening, Hospitalization)
  Sender: FDA-Public Use
  Company Number: US-ELI_LILLY_AND_COMPANY-US200912006030

PATIENT
  Sex: Female

DRUGS (14)
  1. GEMCITABINE HCL [Suspect]
     Indication: MYCOSIS FUNGOIDES
     Dosage: 588 MG, OTHER
     Route: 042
     Dates: start: 20091121
  2. OTHER PHARMA COMPANY INV DRUG [Suspect]
     Indication: MYCOSIS FUNGOIDES
     Dosage: 14.7 MG, OTHER
     Route: 042
     Dates: start: 20091120
  3. MORPHINE SULFATE [Concomitant]
  4. HYDROMORPHONE [Concomitant]
  5. MULTI-VITAMIN [Concomitant]
  6. EZETIMIBE [Concomitant]
  7. LEVOTHYROXINE SODIUM [Concomitant]
  8. ATORVASTATIN CALCIUM [Concomitant]
  9. CETIRIZINE [Concomitant]
  10. CALCIUM [Concomitant]
  11. FUROSEMIDE [Concomitant]
  12. POTASSIUM CHLORIDE [Concomitant]
  13. PREGABALIN [Concomitant]
  14. OMEPRAZOLE [Concomitant]

REACTIONS (4)
  - ELECTROLYTE IMBALANCE [None]
  - HYPOVOLAEMIA [None]
  - PAIN [None]
  - SKIN EXFOLIATION [None]
